FAERS Safety Report 5820119-8 (Version None)
Quarter: 2008Q3

REPORT INFORMATION
  Report Type: 
  Country: None (occurrence: None)
  Receive Date: 20080721
  Receipt Date: 20080711
  Transmission Date: 20090109
  Serious: Yes (Other)
  Sender: FDA-Public Use
  Company Number: ALL1-2008-01883

PATIENT
  Age: 56 Year
  Sex: Male
  Weight: 81.6 kg

DRUGS (7)
  1. VYVANSE [Suspect]
     Indication: ATTENTION DEFICIT/HYPERACTIVITY DISORDER
     Dosage: 30 MG, 1X/DAY: QD, ORAL
     Route: 048
     Dates: start: 20080623
  2. OPIOIDS [Suspect]
  3. METHADONE HCL [Suspect]
  4. EFFEXOR [Concomitant]
  5. CRESTOR [Concomitant]
  6. LYRICA [Concomitant]
  7. VICODON (HYDROCODONE BITARTRATE, PARACETAMOL) [Concomitant]

REACTIONS (5)
  - DRUG WITHDRAWAL SYNDROME [None]
  - FEELING ABNORMAL [None]
  - OVERDOSE [None]
  - SOMNOLENCE [None]
  - TREATMENT NONCOMPLIANCE [None]
